FAERS Safety Report 12668274 (Version 1)
Quarter: 2016Q3

REPORT INFORMATION
  Report Type: Spontaneous
  Country: GB (occurrence: GB)
  Receive Date: 20160819
  Receipt Date: 20160819
  Transmission Date: 20161109
  Serious: Yes (Disabling)
  Sender: FDA-Public Use
  Company Number: GB-TEVA-684516ACC

PATIENT
  Age: 50 Year
  Sex: Male
  Weight: 66 kg

DRUGS (3)
  1. ASPIRIN. [Concomitant]
     Active Substance: ASPIRIN
     Dosage: AS DIRECTED
     Dates: start: 20160401
  2. BACLOFEN. [Suspect]
     Active Substance: BACLOFEN
     Dates: start: 20160613
  3. CALCEOS [Concomitant]
     Active Substance: CALCIUM CARBONATE\CHOLECALCIFEROL
     Dosage: 2 DOSAGE FORMS DAILY;
     Dates: start: 20160305

REACTIONS (3)
  - Muscular weakness [Recovering/Resolving]
  - Joint swelling [Unknown]
  - Peripheral swelling [Recovering/Resolving]

NARRATIVE: CASE EVENT DATE: 20160727
